FAERS Safety Report 22367294 (Version 1)
Quarter: 2023Q2

REPORT INFORMATION
  Report Type: Spontaneous
  Country: US (occurrence: None)
  Receive Date: 20230525
  Receipt Date: 20230525
  Transmission Date: 20230722
  Serious: Yes (Death)
  Sender: FDA-Public Use
  Company Number: US-ROCHE-3355875

PATIENT
  Age: 58 Year
  Sex: Male

DRUGS (1)
  1. ALECENSA [Suspect]
     Active Substance: ALECTINIB HYDROCHLORIDE
     Indication: Neuroendocrine carcinoma
     Route: 048
     Dates: start: 202210

REACTIONS (2)
  - Death [Fatal]
  - Off label use [Unknown]
